FAERS Safety Report 9397824 (Version 12)
Quarter: 2013Q4

REPORT INFORMATION
  Report Type: Report from Study
  Country: CA (occurrence: CA)
  Receive Date: 20130712
  Receipt Date: 20131226
  Transmission Date: 20140711
  Serious: Yes (Hospitalization, Disabling, Other)
  Sender: FDA-Public Use
  Company Number: CA-ROCHE-1231230

PATIENT
  Age: 27 Year
  Sex: Male
  Weight: 76.9 kg

DRUGS (12)
  1. AVASTIN [Suspect]
     Indication: MALIGNANT GLIOMA
     Route: 042
     Dates: start: 20130402, end: 20131213
  2. AVASTIN [Suspect]
     Route: 042
     Dates: start: 20130416
  3. AVASTIN [Suspect]
     Route: 042
     Dates: start: 20130807
  4. AVASTIN [Suspect]
     Route: 042
     Dates: start: 20131003
  5. CLOBAZAM [Suspect]
     Indication: CONVULSION
     Route: 065
  6. LOMUSTINE [Concomitant]
     Route: 065
  7. KEPPRA [Concomitant]
     Route: 065
  8. SENOKOT [Concomitant]
  9. APO-PROCHLORAZINE [Concomitant]
     Route: 065
  10. ONDANSETRON [Concomitant]
     Route: 065
  11. LEVETIRACETAM [Concomitant]
  12. CCNU [Concomitant]

REACTIONS (18)
  - Convulsion [Recovered/Resolved]
  - Convulsion [Recovered/Resolved]
  - Hypoaesthesia [Not Recovered/Not Resolved]
  - Muscular weakness [Not Recovered/Not Resolved]
  - VIIth nerve paralysis [Unknown]
  - Fall [Unknown]
  - Vomiting [Not Recovered/Not Resolved]
  - Conjunctivitis [Recovered/Resolved]
  - Aphasia [Not Recovered/Not Resolved]
  - Arthropod bite [Not Recovered/Not Resolved]
  - Alopecia [Not Recovered/Not Resolved]
  - Nasopharyngitis [Recovered/Resolved]
  - Sleep disorder [Unknown]
  - Blood pressure increased [Recovering/Resolving]
  - Drug ineffective [Unknown]
  - Sensation of heaviness [Unknown]
  - Limb injury [Unknown]
  - Asthenia [Unknown]
